FAERS Safety Report 7750859-5 (Version None)
Quarter: 2011Q3

REPORT INFORMATION
  Report Type: 
  Country: None (occurrence: None)
  Receive Date: 20110914
  Receipt Date: 20110907
  Transmission Date: 20111222
  Serious: Yes (Other)
  Sender: FDA-Public Use
  Company Number: PHHY2011GB73053

PATIENT
  Age: 87 Year
  Sex: Male

DRUGS (3)
  1. TRAMADOL HCL [Suspect]
     Indication: PAIN MANAGEMENT
     Route: 048
  2. CO-BENELDOPA [Concomitant]
     Dosage: 125 MG, TID
  3. ENTACAPONE [Concomitant]
     Dosage: 200 MG, TID

REACTIONS (5)
  - PARKINSON'S DISEASE [None]
  - IMMOBILE [None]
  - MOBILITY DECREASED [None]
  - GAIT DISTURBANCE [None]
  - FREEZING PHENOMENON [None]
